FAERS Safety Report 17604796 (Version 3)
Quarter: 2020Q2

REPORT INFORMATION
  Report Type: Report from Study
  Country: GB (occurrence: GB)
  Receive Date: 20200331
  Receipt Date: 20200605
  Transmission Date: 20200713
  Serious: Yes (Hospitalization)
  Sender: FDA-Public Use
  Company Number: NVSC2020GB074381

PATIENT
  Age: 73 Year
  Sex: Female

DRUGS (2)
  1. SANDOSTATIN LAR DEPOT [Suspect]
     Active Substance: OCTREOTIDE ACETATE
     Indication: NEUROENDOCRINE TUMOUR
     Dosage: 30 MG, TIW (EVERY 21 DAYS)
     Route: 030
     Dates: start: 2018
  2. SANDOSTATIN LAR DEPOT [Suspect]
     Active Substance: OCTREOTIDE ACETATE
     Dosage: 30 MG, TIW (EVERY 21 DAYS)
     Route: 030
     Dates: start: 2018

REACTIONS (8)
  - Coronavirus test positive [Unknown]
  - Injection site pain [Recovered/Resolved]
  - Confusional state [Recovering/Resolving]
  - Inappropriate schedule of product administration [Unknown]
  - Pleural effusion [Unknown]
  - General physical health deterioration [Unknown]
  - Fatigue [Unknown]
  - Nausea [Recovering/Resolving]

NARRATIVE: CASE EVENT DATE: 202002
